FAERS Safety Report 4923915-4 (Version None)
Quarter: 2006Q1

REPORT INFORMATION
  Report Type: 
  Country: None (occurrence: None)
  Receive Date: 20060224
  Receipt Date: 20060224
  Transmission Date: 20060701
  Serious: Yes (Life-Threatening, Hospitalization)
  Sender: FDA-Public Use
  Company Number: None

PATIENT
  Age: 59 Year
  Sex: Male
  Weight: 129.2752 kg

DRUGS (2)
  1. PHENYTOIN [Suspect]
     Indication: CONVULSION
     Dosage: 3 PO IN AM, 3 IN PM ON MWF, 4 IN PM ON T TH SAT SUN
     Route: 048
  2. PHENYTOIN [Suspect]
     Indication: INTRACRANIAL ANEURYSM
     Dosage: 3 PO IN AM, 3 IN PM ON MWF, 4 IN PM ON T TH SAT SUN
     Route: 048

REACTIONS (2)
  - CONVULSION [None]
  - PHARMACEUTICAL PRODUCT COMPLAINT [None]
